FAERS Safety Report 14813934 (Version 1)
Quarter: 2018Q2

REPORT INFORMATION
  Report Type: Spontaneous
  Country: ES (occurrence: ES)
  Receive Date: 20180426
  Receipt Date: 20180426
  Transmission Date: 20180711
  Serious: Yes (Hospitalization, Other)
  Sender: FDA-Public Use
  Company Number: ES-ALEMBIC PHARMACUETICALS LIMITED-2018SCAL000289

PATIENT

DRUGS (6)
  1. METAMIZOLE [Suspect]
     Active Substance: METAMIZOLE
     Indication: INFLUENZA LIKE ILLNESS
     Dosage: 575 MG/8 H
     Route: 048
  2. METAMIZOLE [Suspect]
     Active Substance: METAMIZOLE
     Dosage: UNK
  3. VALSARTAN. [Suspect]
     Active Substance: VALSARTAN
     Indication: HYPERTENSION
     Dosage: UNK
     Route: 065
  4. PARACETAMOL [Suspect]
     Active Substance: ACETAMINOPHEN
     Indication: INFLUENZA LIKE ILLNESS
     Dosage: UNK
     Route: 065
  5. GEMFIBROZIL. [Suspect]
     Active Substance: GEMFIBROZIL
     Indication: HYPERTRIGLYCERIDAEMIA
     Dosage: UNK
     Route: 065
  6. PARACETAMOL [Suspect]
     Active Substance: ACETAMINOPHEN
     Dosage: AS REQUIRED

REACTIONS (21)
  - Dry skin [Recovered/Resolved]
  - Hypouricaemia [Recovered/Resolved]
  - Asthenia [Recovered/Resolved]
  - Hyperuricosuria [Recovered/Resolved]
  - Hypertension [Recovered/Resolved]
  - Fanconi syndrome acquired [Recovered/Resolved]
  - Glycosuria [Recovered/Resolved]
  - Isosthenuria [Recovered/Resolved]
  - Acquired aminoaciduria [Recovered/Resolved]
  - Proteinuria [Recovered/Resolved]
  - Acute kidney injury [Recovered/Resolved]
  - Nausea [Recovered/Resolved]
  - Metabolic acidosis [Recovered/Resolved]
  - Abdominal pain [Recovered/Resolved]
  - Hyperphosphaturia [Recovered/Resolved]
  - Haematuria [Recovered/Resolved]
  - Renal tubular necrosis [Recovered/Resolved]
  - Mucosal dryness [Recovered/Resolved]
  - Tubulointerstitial nephritis [Recovered/Resolved]
  - Hypophagia [Recovered/Resolved]
  - Glomerular filtration rate decreased [Recovered/Resolved]
